FAERS Safety Report 9646188 (Version 2)
Quarter: 2013Q4

REPORT INFORMATION
  Report Type: Spontaneous
  Country: GB (occurrence: GB)
  Receive Date: 20131025
  Receipt Date: 20131025
  Transmission Date: 20140711
  Serious: Yes (Disabling, Other)
  Sender: FDA-Public Use
  Company Number: ALCN2011GB000581

PATIENT
  Age: 65 Year
  Sex: Male
  Weight: 74 kg

DRUGS (2)
  1. AZOPT [Suspect]
     Indication: GLAUCOMA
     Dosage: 1 GTT, BID
     Route: 047
     Dates: start: 20110207, end: 20110213
  2. XALATAN [Concomitant]
     Dosage: UNK
     Route: 047
     Dates: start: 20100208

REACTIONS (5)
  - Organic erectile dysfunction [Recovering/Resolving]
  - Sexual dysfunction [Recovering/Resolving]
  - Loss of libido [Recovering/Resolving]
  - Pruritus [Recovered/Resolved]
  - Drug half-life increased [Unknown]
